FAERS Safety Report 13492128 (Version 1)
Quarter: 2017Q2

REPORT INFORMATION
  Report Type: Spontaneous
  Country: GR (occurrence: GR)
  Receive Date: 20170427
  Receipt Date: 20170427
  Transmission Date: 20170830
  Serious: Yes (Hospitalization, Other)
  Sender: FDA-Public Use
  Company Number: GR-ELI_LILLY_AND_COMPANY-GR201704009524

PATIENT
  Age: 23 Year
  Sex: Female
  Weight: 54 kg

DRUGS (1)
  1. ZYPADHERA [Suspect]
     Active Substance: OLANZAPINE PAMOATE
     Indication: PRODUCT USED FOR UNKNOWN INDICATION
     Dosage: 300 MG, MONTHLY (1/M)
     Route: 030
     Dates: start: 2013

REACTIONS (5)
  - Altered state of consciousness [Recovered/Resolved]
  - Tachycardia [Recovered/Resolved]
  - Lethargy [Recovered/Resolved]
  - Confusional state [Recovered/Resolved]
  - Intellectual disability [Unknown]

NARRATIVE: CASE EVENT DATE: 20170130
